FAERS Safety Report 6054412-3 (Version None)
Quarter: 2009Q1

REPORT INFORMATION
  Report Type: 
  Country: None (occurrence: None)
  Receive Date: 20090127
  Receipt Date: 20090119
  Transmission Date: 20090719
  Serious: Yes (Other)
  Sender: FDA-Public Use
  Company Number: PHEH2007US12807

PATIENT
  Sex: Male

DRUGS (4)
  1. AREDIA [Suspect]
     Dosage: UNK
  2. ZOMETA [Suspect]
     Indication: MULTIPLE MYELOMA
     Dosage: UNK
  3. CHLORHEXIDINE GLUCONATE [Concomitant]
     Dosage: 0.12% BID
  4. VITAMIN D [Concomitant]
     Dosage: UNK
     Dates: start: 20080101

REACTIONS (9)
  - ANHEDONIA [None]
  - ANXIETY [None]
  - DEFORMITY [None]
  - DISCOMFORT [None]
  - EMOTIONAL DISTRESS [None]
  - INFECTION [None]
  - INJURY [None]
  - OSTEONECROSIS [None]
  - PAIN [None]
